FAERS Safety Report 21181402 (Version 2)
Quarter: 2022Q4

REPORT INFORMATION
  Report Type: Spontaneous
  Country: US (occurrence: US)
  Receive Date: 20220806
  Receipt Date: 20221214
  Transmission Date: 20230113
  Serious: No
  Sender: FDA-Public Use
  Company Number: US-SA-SAC20220802001249

PATIENT
  Sex: Female

DRUGS (2)
  1. KEVZARA [Suspect]
     Active Substance: SARILUMAB
     Indication: Rheumatoid arthritis
     Dosage: 200MG, QOW
     Route: 058
     Dates: start: 20220708
  2. KEVZARA [Suspect]
     Active Substance: SARILUMAB
     Indication: Eosinophilic oesophagitis

REACTIONS (3)
  - Contusion [Unknown]
  - Drug ineffective [Unknown]
  - Product use in unapproved indication [Unknown]
